FAERS Safety Report 8489494-2 (Version None)
Quarter: 2012Q3

REPORT INFORMATION
  Report Type: 
  Country: None (occurrence: None)
  Receive Date: 20120705
  Receipt Date: 20120626
  Transmission Date: 20120928
  Serious: Yes (Other)
  Sender: FDA-Public Use
  Company Number: US-VERTEX PHARMACEUTICALS INC.-AE-2012-009530

PATIENT
  Sex: Female
  Weight: 40.86 kg

DRUGS (3)
  1. RIBAVIRIN [Concomitant]
     Indication: HEPATITIS C
     Route: 048
     Dates: start: 20120525, end: 20120620
  2. PEGASYS [Concomitant]
     Indication: HEPATITIS C
     Route: 058
     Dates: start: 20120525, end: 20120620
  3. INCIVEK [Suspect]
     Indication: HEPATITIS C
     Route: 048
     Dates: start: 20120525, end: 20120620

REACTIONS (9)
  - BLOOD CREATININE INCREASED [None]
  - BLOOD URIC ACID INCREASED [None]
  - SYNCOPE [None]
  - DEHYDRATION [None]
  - ASTHENIA [None]
  - ANAEMIA [None]
  - NAUSEA [None]
  - DIARRHOEA [None]
  - BLOOD UREA INCREASED [None]
